FAERS Safety Report 7344548-9 (Version None)
Quarter: 2011Q1

REPORT INFORMATION
  Report Type: 
  Country: None (occurrence: None)
  Receive Date: 20110308
  Receipt Date: 20110308
  Transmission Date: 20110831
  Serious: Yes (Other)
  Sender: FDA-Public Use
  Company Number: None

PATIENT
  Age: 39 Year
  Sex: Female
  Weight: 68.0396 kg

DRUGS (2)
  1. LEVAQUIN [Suspect]
     Indication: BRONCHITIS
     Dosage: 10 TAB 1XD PO
     Route: 048
     Dates: start: 20041230, end: 20050531
  2. TEQUIN [Suspect]
     Indication: BRONCHITIS
     Dosage: 10 TAB 1XD PO
     Route: 048
     Dates: start: 20041007, end: 20051121

REACTIONS (19)
  - PARAESTHESIA [None]
  - DIZZINESS [None]
  - TINNITUS [None]
  - TREMOR [None]
  - BLADDER DISORDER [None]
  - POLYNEUROPATHY [None]
  - PAIN IN EXTREMITY [None]
  - PAIN [None]
  - VISION BLURRED [None]
  - GAIT DISTURBANCE [None]
  - BURNING SENSATION [None]
  - SENSORY DISTURBANCE [None]
  - MYALGIA [None]
  - GASTROINTESTINAL DISORDER [None]
  - HYPOAESTHESIA [None]
  - MUSCULAR WEAKNESS [None]
  - ARTHRALGIA [None]
  - INSOMNIA [None]
  - TOOTH DISORDER [None]
